FAERS Safety Report 12992038 (Version 4)
Quarter: 2018Q1

REPORT INFORMATION
  Report Type: Spontaneous
  Country: DE (occurrence: DE)
  Receive Date: 20161201
  Receipt Date: 20180131
  Transmission Date: 20180508
  Serious: Yes (Other)
  Sender: FDA-Public Use
  Company Number: DE-TEVA-714522GER

PATIENT
  Age: 90 Year
  Sex: Female
  Weight: 53 kg

DRUGS (11)
  1. TORASEMID [Suspect]
     Active Substance: TORSEMIDE
     Dosage: 10 MILLIGRAM DAILY;
     Route: 048
     Dates: start: 20160802, end: 20160901
  2. METOPROLOL. [Concomitant]
     Active Substance: METOPROLOL
     Route: 048
  3. VALSARTAN. [Concomitant]
     Active Substance: VALSARTAN
     Dosage: 40 MILLIGRAM DAILY;
     Route: 048
  4. VALSARTAN. [Concomitant]
     Active Substance: VALSARTAN
     Dosage: 40 MG, QD
     Route: 048
  5. FERRO SANOL [Concomitant]
     Active Substance: FERROUS GLYCINE SULFATE
     Dosage: 200 MILLIGRAM DAILY;
     Route: 048
  6. KALINOR (POTASSIUM CHLORIDE) [Concomitant]
     Active Substance: POTASSIUM CHLORIDE
     Dosage: 600 MILLIGRAM DAILY;
     Route: 048
     Dates: start: 20160605, end: 20160901
  7. VALDOXAN [Suspect]
     Active Substance: AGOMELATINE
     Route: 048
     Dates: start: 20160808, end: 20160830
  8. EUTHYROX [Concomitant]
     Active Substance: LEVOTHYROXINE SODIUM
     Dosage: .075 MILLIGRAM DAILY;
     Route: 048
  9. PANTOPRAZOLE [Concomitant]
     Active Substance: PANTOPRAZOLE
     Route: 048
  10. XARELTO [Concomitant]
     Active Substance: RIVAROXABAN
     Dosage: 15 MILLIGRAM DAILY;
     Route: 048
  11. ABILIFY [Suspect]
     Active Substance: ARIPIPRAZOLE
     Dosage: 5 MILLIGRAM DAILY;
     Route: 048
     Dates: start: 20160620

REACTIONS (6)
  - Transaminases increased [Recovering/Resolving]
  - Alanine aminotransferase increased [Recovering/Resolving]
  - Weight decreased [Unknown]
  - Prescribed underdose [Unknown]
  - Aspartate aminotransferase increased [Recovering/Resolving]
  - Drug administered to patient of inappropriate age [Recovered/Resolved]

NARRATIVE: CASE EVENT DATE: 20160620
